FAERS Safety Report 7796987-X (Version None)
Quarter: 2011Q4

REPORT INFORMATION
  Report Type: 
  Country: None (occurrence: None)
  Receive Date: 20111005
  Receipt Date: 20111005
  Transmission Date: 20120403
  Serious: Yes (Other)
  Sender: FDA-Public Use
  Company Number: None

PATIENT
  Sex: Male
  Weight: 67.585 kg

DRUGS (1)
  1. ROWASA [Suspect]
     Indication: COLITIS ULCERATIVE
     Dosage: 4.0G MESALAMINE
     Route: 054
     Dates: start: 20110315, end: 20111002

REACTIONS (5)
  - ABDOMINAL DISTENSION [None]
  - INFLAMMATION [None]
  - GASTROINTESTINAL DISORDER [None]
  - FLATULENCE [None]
  - RESTLESSNESS [None]
